FAERS Safety Report 4530067-1 (Version None)
Quarter: 2004Q4

REPORT INFORMATION
  Report Type: 
  Country: None (occurrence: None)
  Receive Date: 20041215
  Receipt Date: 20041202
  Transmission Date: 20050328
  Serious: Yes (Other)
  Sender: FDA-Public Use
  Company Number: 2004105159

PATIENT
  Sex: Female
  Weight: 99.7913 kg

DRUGS (3)
  1. LITHIUM (LITHIUM) [Suspect]
     Indication: ILL-DEFINED DISORDER
  2. ZOLOFT [Suspect]
     Indication: MAJOR DEPRESSION
     Dosage: 200 MG (100 MG, 2 IN 1 D), ORAL
     Route: 048
     Dates: start: 19920101
  3. VALPROATE SODIUM [Suspect]
     Indication: ILL-DEFINED DISORDER
     Dates: start: 19920101

REACTIONS (6)
  - FATIGUE [None]
  - GYNAECOMASTIA [None]
  - HAEMODIALYSIS [None]
  - HEPATIC FUNCTION ABNORMAL [None]
  - HYPERHIDROSIS [None]
  - PNEUMONIA [None]
